FAERS Safety Report 15798802 (Version 2)
Quarter: 2019Q1

REPORT INFORMATION
  Report Type: Spontaneous
  Country: US (occurrence: US)
  Receive Date: 20190108
  Receipt Date: 20190108
  Transmission Date: 20190417
  Serious: No
  Sender: FDA-Public Use
  Company Number: US-SA-2019SA004075

PATIENT
  Age: 73 Year
  Sex: Female

DRUGS (1)
  1. PRALUENT [Suspect]
     Active Substance: ALIROCUMAB
     Dosage: 150 MG, QOW
     Route: 058
     Dates: start: 20181129

REACTIONS (7)
  - Headache [Unknown]
  - Rhinorrhoea [Unknown]
  - Diarrhoea [Unknown]
  - Nasopharyngitis [Unknown]
  - Product dose omission [Unknown]
  - Abdominal pain upper [Unknown]
  - Weight decreased [Unknown]

NARRATIVE: CASE EVENT DATE: 20181223
